FAERS Safety Report 7457555-2 (Version None)
Quarter: 2011Q1

REPORT INFORMATION
  Report Type: 
  Country: None (occurrence: None)
  Receive Date: 20110302
  Receipt Date: 20101209
  Transmission Date: 20110831
  Serious: Yes (Disabling, Other)
  Sender: FDA-Public Use
  Company Number: 163-21880-10111751

PATIENT
  Age: 88 Year
  Sex: Male

DRUGS (25)
  1. AVODART [Concomitant]
  2. CALCIUM (CALCIUM) [Concomitant]
  3. VITAMIN B-2 (RIBOFLAVIN) [Concomitant]
  4. SYSTANE (RHINARIS) [Concomitant]
  5. NORVASC [Concomitant]
  6. CENTRUM SILVER (CENTRUM SILVER) [Concomitant]
  7. VITAMIN C WITH ROSEHIPS (ASCORBIC ACID) [Concomitant]
  8. METOLAZONE [Concomitant]
  9. PROCRIT [Concomitant]
  10. COUMADIN [Concomitant]
  11. ACTOS [Concomitant]
  12. FLOMAX [Concomitant]
  13. LIPITOR [Concomitant]
  14. ALLERGY SHOTS (ALL OTHER THERAPEUTIC PRODUCTS) [Concomitant]
  15. DIURETICS (DIURETICS) [Concomitant]
  16. DIOVAN HCT [Concomitant]
  17. CELEBREX [Concomitant]
  18. DIGOXIN [Concomitant]
  19. VITAMIN B1 TAB [Concomitant]
  20. FISH OIL (FISH OIL) [Concomitant]
  21. REVLIMID [Suspect]
     Indication: MULTIPLE MYELOMA
     Dosage: 15 MG, DAILY FOR 21 DAYS (3 WKS ON, 1 WK OFF), PO
     Route: 048
     Dates: start: 20101001
  22. LASIX [Concomitant]
  23. HYDROCHLOROTHIAZIDE [Concomitant]
  24. PRESERVISION (PRESERVISION LUTEIN EYE VITA. +MIN.SUP.SOFTG.) [Concomitant]
  25. ZINC GLYCINATE (ZINC GLUCONATE) [Concomitant]

REACTIONS (5)
  - FLUID RETENTION [None]
  - FATIGUE [None]
  - HERPES ZOSTER [None]
  - HYPOTENSION [None]
  - RASH [None]
